FAERS Safety Report 7277235-6 (Version None)
Quarter: 2011Q1

REPORT INFORMATION
  Report Type: 
  Country: None (occurrence: None)
  Receive Date: 20110113
  Receipt Date: 20110113
  Transmission Date: 20110831
  Serious: Yes (Hospitalization, Other)
  Sender: FDA-Public Use
  Company Number: None

PATIENT
  Age: 49 Year
  Sex: Male
  Weight: 86.1834 kg

DRUGS (1)
  1. ALCOHOL SWAB TRIAD GROUP, INC [Suspect]
     Indication: THERAPEUTIC SKIN CARE TOPICAL
     Dosage: 1 PREP PAD 3 TIMES DAILY
     Dates: start: 20100101, end: 20101231

REACTIONS (2)
  - BACTERIAL INFECTION [None]
  - INFECTION [None]
